FAERS Safety Report 6970706-9 (Version None)
Quarter: 2010Q3

REPORT INFORMATION
  Report Type: 
  Country: None (occurrence: None)
  Receive Date: 20100908
  Receipt Date: 20100830
  Transmission Date: 20110219
  Serious: Yes (Other)
  Sender: FDA-Public Use
  Company Number: US-JNJFOC-20100900788

PATIENT
  Age: 67 Year
  Sex: Female
  Weight: 68.49 kg

DRUGS (4)
  1. EXTRA STRENGTH TYLENOL PM [Suspect]
     Indication: SLEEP DISORDER THERAPY
     Dosage: REPORTED DOSE= 1/2 TO 1 CAPLET
     Route: 048
  2. EXTRA STRENGTH TYLENOL PM [Suspect]
     Indication: ARTHRITIS
     Dosage: REPORTED DOSE= 1/2 TO 1 CAPLET
     Route: 048
  3. FLONASE [Concomitant]
     Indication: HYPERSENSITIVITY
  4. CALCITONIN [Concomitant]
     Indication: HYPERSENSITIVITY

REACTIONS (3)
  - DRUG ADMINISTRATION ERROR [None]
  - HYPERTENSION [None]
  - PRODUCT QUALITY ISSUE [None]
